FAERS Safety Report 7108016-1 (Version None)
Quarter: 2010Q4

REPORT INFORMATION
  Report Type: 
  Country: None (occurrence: None)
  Receive Date: 20101109
  Receipt Date: 20101028
  Transmission Date: 20110411
  Serious: Yes (Hospitalization, Disabling)
  Sender: FDA-Public Use
  Company Number: 2010SP002792

PATIENT
  Age: 27 Year
  Sex: Female
  Weight: 72.5755 kg

DRUGS (3)
  1. NUVARING [Suspect]
     Indication: CONTRACEPTION
     Dates: start: 20060101, end: 20080501
  2. STEROIDS [Concomitant]
  3. MULTI-VITAMINS [Concomitant]

REACTIONS (57)
  - ABDOMINAL PAIN [None]
  - ANGER [None]
  - ANXIETY [None]
  - BACK INJURY [None]
  - BACK PAIN [None]
  - BIPOLAR DISORDER [None]
  - BLINDNESS [None]
  - CLAUSTROPHOBIA [None]
  - COGNITIVE DISORDER [None]
  - DEHYDRATION [None]
  - DEPRESSION [None]
  - DIPLOPIA [None]
  - DISORIENTATION [None]
  - DIZZINESS [None]
  - DRUG INEFFECTIVE [None]
  - EAR INFECTION [None]
  - ECONOMIC PROBLEM [None]
  - FEELING JITTERY [None]
  - FOLLICULITIS [None]
  - GALACTORRHOEA [None]
  - GASTROOESOPHAGEAL REFLUX DISEASE [None]
  - GENITAL DISCHARGE [None]
  - HAEMATURIA [None]
  - HAEMORRHAGIC STROKE [None]
  - HEADACHE [None]
  - HYPERSENSITIVITY [None]
  - HYPERTENSION [None]
  - IMPAIRED WORK ABILITY [None]
  - INSOMNIA [None]
  - INTERNATIONAL NORMALISED RATIO DECREASED [None]
  - INTRACRANIAL VENOUS SINUS THROMBOSIS [None]
  - IRRITABILITY [None]
  - LOSS OF CONSCIOUSNESS [None]
  - LOW DENSITY LIPOPROTEIN INCREASED [None]
  - MEMORY IMPAIRMENT [None]
  - MENTAL DISORDER [None]
  - MIGRAINE [None]
  - MOOD DISORDER DUE TO A GENERAL MEDICAL CONDITION [None]
  - MUSCLE SPASMS [None]
  - MUSCLE STRAIN [None]
  - NERVOUS SYSTEM DISORDER [None]
  - OVARIAN CYST [None]
  - PANIC ATTACK [None]
  - PHARYNGITIS [None]
  - PHOTOPHOBIA [None]
  - PROTEIN S DEFICIENCY [None]
  - ROAD TRAFFIC ACCIDENT [None]
  - SCOTOMA [None]
  - SINUSITIS [None]
  - SKIN PAPILLOMA [None]
  - SYNCOPE [None]
  - THROMBOTIC STROKE [None]
  - UNEVALUABLE EVENT [None]
  - VISUAL FIELD DEFECT [None]
  - VITH NERVE PARALYSIS [None]
  - VULVOVAGINAL DISCOMFORT [None]
  - WEIGHT INCREASED [None]
